FAERS Safety Report 16317992 (Version 2)
Quarter: 2019Q2

REPORT INFORMATION
  Report Type: Spontaneous
  Country: CH (occurrence: CH)
  Receive Date: 20190516
  Receipt Date: 20190522
  Transmission Date: 20190711
  Serious: Yes (Other)
  Sender: FDA-Public Use
  Company Number: CH-ASTRAZENECA-2019SE72641

PATIENT
  Age: 28322 Day
  Sex: Female

DRUGS (19)
  1. NEXIUM MUPS [Suspect]
     Active Substance: ESOMEPRAZOLE
     Route: 048
     Dates: start: 20190421
  2. CETIRIZINE [Suspect]
     Active Substance: CETIRIZINE HYDROCHLORIDE
     Dosage: 5 MG MAX TWO TIMES A DAY AS NECESSARY
     Route: 065
     Dates: start: 20190425
  3. BACTRIM [Suspect]
     Active Substance: SULFAMETHOXAZOLE\TRIMETHOPRIM
     Dosage: 1DF (3 WEEKS)
     Route: 048
     Dates: start: 20190424
  4. VITAMIN B12 [Concomitant]
     Active Substance: CYANOCOBALAMIN
     Dates: start: 20190426
  5. MOTILIUM [Concomitant]
     Active Substance: DOMPERIDONE
     Dosage: AS NECESSARY
     Dates: start: 20190426
  6. RIOPAN [Concomitant]
     Dosage: AS NECESSARY
     Dates: start: 20190425
  7. MOVICOL [Concomitant]
     Active Substance: POLYETHYLENE GLYCOL 3350\POTASSIUM CHLORIDE\SODIUM BICARBONATE\SODIUM CHLORIDE
     Dosage: AS NECESSARY
     Dates: start: 20190421
  8. ONDANSETRON [Concomitant]
     Active Substance: ONDANSETRON
     Dosage: AS NECESSARY
     Dates: start: 20190420
  9. LAXOBERON [Concomitant]
     Active Substance: SODIUM PICOSULFATE
     Dosage: AS NECESSARY
     Dates: start: 20190421
  10. TEMODAL [Suspect]
     Active Substance: TEMOZOLOMIDE
     Route: 065
     Dates: start: 20190312, end: 20190409
  11. DAFALGAN [Concomitant]
     Active Substance: ACETAMINOPHEN
     Dosage: AS NECESSARY
  12. DEXAMETHASONE. [Concomitant]
     Active Substance: DEXAMETHASONE
     Dates: start: 20190424
  13. BELOC ZOK [Concomitant]
     Active Substance: METOPROLOL SUCCINATE
     Dates: start: 2013
  14. LEVETIRACETAM. [Suspect]
     Active Substance: LEVETIRACETAM
     Dosage: 1 G (2 DAYS)
     Route: 048
     Dates: start: 20190210
  15. DAFALGAN [Concomitant]
     Active Substance: ACETAMINOPHEN
     Dosage: IN TOTAL
     Dates: start: 20190420
  16. COAPROVEL [Concomitant]
     Active Substance: HYDROCHLOROTHIAZIDE\IRBESARTAN
     Dates: start: 2013, end: 20190420
  17. ACIDUM FOLICUM [Concomitant]
     Active Substance: FOLIC ACID
     Dates: start: 20190426
  18. FILGRASTIM [Concomitant]
     Active Substance: FILGRASTIM
     Dates: start: 20190421, end: 20190429
  19. CEFEPIME [Suspect]
     Active Substance: CEFEPIME HYDROCHLORIDE
     Dosage: 2 G (2 DAYS)
     Route: 042
     Dates: start: 20190423, end: 20190501

REACTIONS (1)
  - Cholestatic liver injury [Recovering/Resolving]

NARRATIVE: CASE EVENT DATE: 20190429
